FAERS Safety Report 7608459-3 (Version None)
Quarter: 2011Q3

REPORT INFORMATION
  Report Type: 
  Country: None (occurrence: None)
  Receive Date: 20110713
  Receipt Date: 20110713
  Transmission Date: 20111222
  Serious: Yes (Hospitalization)
  Sender: FDA-Public Use
  Company Number: None

PATIENT
  Sex: Female

DRUGS (1)
  1. MAGNESIUM CITRATE GRAPE FLAVOR/SALINE LAXATIVE ORAL [Suspect]
     Indication: CONSTIPATION
     Dosage: 5-7 FL OZ. ONCE, ORALLY
     Route: 048

REACTIONS (2)
  - ANAPHYLACTIC SHOCK [None]
  - MALAISE [None]
